FAERS Safety Report 26139059 (Version 1)
Quarter: 2025Q4

REPORT INFORMATION
  Report Type: Spontaneous
  Country: US (occurrence: US)
  Receive Date: 20251210
  Receipt Date: 20251210
  Transmission Date: 20260118
  Serious: Yes (Other)
  Sender: RANBAXY
  Company Number: US-SUN PHARMACEUTICAL INDUSTRIES INC-2025R1-540121

PATIENT
  Age: 36 Year
  Sex: Female

DRUGS (4)
  1. CLONIDINE [Suspect]
     Active Substance: CLONIDINE
     Indication: Dyspnoea
     Dosage: UNK
     Route: 048
  2. CLONIDINE [Suspect]
     Active Substance: CLONIDINE
     Indication: Stridor
  3. LIDOCAINE [Suspect]
     Active Substance: LIDOCAINE
     Indication: Dyspnoea
     Dosage: UNK
  4. LIDOCAINE [Suspect]
     Active Substance: LIDOCAINE
     Indication: Stridor

REACTIONS (1)
  - Therapy non-responder [Unknown]
